FAERS Safety Report 10079254 (Version 2)
Quarter: 2014Q2

REPORT INFORMATION
  Report Type: Spontaneous
  Country: AU (occurrence: AU)
  Receive Date: 20140415
  Receipt Date: 20140418
  Transmission Date: 20141212
  Serious: Yes (Disabling)
  Sender: FDA-Public Use
  Company Number: AU-B.I. PHARMACEUTICALS,INC./RIDGEFIELD-2014-BI-15242AU

PATIENT
  Sex: Male

DRUGS (5)
  1. LINAGLIPTIN [Suspect]
     Indication: TYPE 2 DIABETES MELLITUS
     Dosage: 5 MG
     Route: 065
     Dates: start: 20131121, end: 20131214
  2. LINAGLIPTIN [Suspect]
     Route: 065
  3. DIABEX [Concomitant]
     Route: 065
  4. DIAMICRON [Concomitant]
     Route: 065
  5. PROBENECID [Concomitant]
     Route: 065

REACTIONS (3)
  - Arthritis [Unknown]
  - Arthralgia [Unknown]
  - Synovitis [Unknown]
